FAERS Safety Report 25185650 (Version 1)
Quarter: 2025Q2

REPORT INFORMATION
  Report Type: Spontaneous
  Country: US (occurrence: US)
  Receive Date: 20250410
  Receipt Date: 20250410
  Transmission Date: 20250716
  Serious: No
  Sender: MISSION
  Company Number: US-Mission Pharmacal Company-2174552

PATIENT
  Age: 23 Year
  Sex: Female

DRUGS (4)
  1. THIOLA EC [Suspect]
     Active Substance: TIOPRONIN
     Indication: Cystinuria
     Dates: start: 20241223, end: 20250401
  2. LIPITOR [Concomitant]
     Active Substance: ATORVASTATIN CALCIUM
  3. POTASSIUM CITRATE [Concomitant]
     Active Substance: POTASSIUM CITRATE
  4. VIENVA TM [Concomitant]
     Active Substance: ETHINYL ESTRADIOL\LEVONORGESTREL

REACTIONS (5)
  - Weight increased [Unknown]
  - Blood cholesterol increased [Unknown]
  - Proteinuria [Unknown]
  - Peripheral swelling [Unknown]
  - Oedema [Unknown]
